FAERS Safety Report 4672611-X (Version None)
Quarter: 2005Q2

REPORT INFORMATION
  Report Type: 
  Country: None (occurrence: None)
  Receive Date: 20050524
  Receipt Date: 20050512
  Transmission Date: 20051028
  Serious: Yes (Hospitalization)
  Sender: FDA-Public Use
  Company Number: US-SANOFI-SYNTHELABO-D01200503515

PATIENT
  Sex: Female
  Weight: 41.5 kg

DRUGS (8)
  1. OXALIPLATIN [Suspect]
     Indication: GASTROINTESTINAL CANCER METASTATIC
     Route: 042
     Dates: start: 20050414, end: 20050414
  2. FLUOROURACIL [Suspect]
     Dosage: 300 MG/M2 IV BOLUS FOLLOWED BY 500 MG/M2 IV CONTINUOUS INFUSION, D1-D2, Q2W
     Route: 042
     Dates: start: 20050414, end: 20050415
  3. LEUCOVORIN [Suspect]
     Route: 042
     Dates: start: 20050414, end: 20050415
  4. K-DUR 10 [Concomitant]
  5. MIRTAZAPINE [Concomitant]
  6. EFFEXOR [Concomitant]
  7. VITAMIN B-12 [Concomitant]
  8. LOPERAMIDE HCL [Concomitant]

REACTIONS (9)
  - ASTHENIA [None]
  - DEHYDRATION [None]
  - DIARRHOEA [None]
  - ENDOSCOPY ABNORMAL [None]
  - GASTROOESOPHAGEAL REFLUX DISEASE [None]
  - HYPOVOLAEMIA [None]
  - NEUTROPENIA [None]
  - RENAL FAILURE ACUTE [None]
  - WEIGHT DECREASED [None]
